FAERS Safety Report 6573080-5 (Version None)
Quarter: 2010Q1

REPORT INFORMATION
  Report Type: 
  Country: None (occurrence: None)
  Receive Date: 20100208
  Receipt Date: 20100129
  Transmission Date: 20100710
  Serious: Yes (Death, Life-Threatening, Hospitalization)
  Sender: FDA-Public Use
  Company Number: IN-ELI_LILLY_AND_COMPANY-IN201001003505

PATIENT
  Sex: Male
  Weight: 50 kg

DRUGS (7)
  1. PEMETREXED [Suspect]
     Indication: NON-SMALL CELL LUNG CANCER STAGE III
     Dosage: 500 MG/M2, CYCLICAL
     Route: 042
     Dates: start: 20090820, end: 20090930
  2. PEMETREXED [Suspect]
     Dosage: 500 MG/M2, CYCLICAL
     Route: 042
     Dates: start: 20091104, end: 20100108
  3. CISPLATIN [Suspect]
     Indication: NON-SMALL CELL LUNG CANCER STAGE III
     Dosage: 75 MG/M2, CYCLICAL
     Route: 042
     Dates: start: 20090820, end: 20090930
  4. RADIATION [Suspect]
     Indication: NON-SMALL CELL LUNG CANCER STAGE III
     Dosage: UNK, 66 GY/33 FRACTIONS IN TOTAL
     Dates: start: 20090820, end: 20091005
  5. FOLIC ACID [Concomitant]
     Indication: PROPHYLAXIS
     Dates: start: 20090810, end: 20100116
  6. VITAMIN B-12 [Concomitant]
     Indication: PROPHYLAXIS
     Dates: start: 20091215, end: 20091215
  7. DEXAMETHASONE [Concomitant]
     Indication: PROPHYLAXIS
     Dates: start: 20100107, end: 20100109

REACTIONS (2)
  - CARDIO-RESPIRATORY ARREST [None]
  - PNEUMONIA [None]
